FAERS Safety Report 10731713 (Version 1)
Quarter: 2015Q1

REPORT INFORMATION
  Report Type: Spontaneous
  Country: IT (occurrence: IT)
  Receive Date: 20150123
  Receipt Date: 20150123
  Transmission Date: 20150721
  Serious: Yes (Other)
  Sender: FDA-Public Use
  Company Number: IT-ACCORD-028189

PATIENT
  Age: 73 Year
  Sex: Female

DRUGS (4)
  1. OXALIPLATIN ACCORD [Suspect]
     Active Substance: OXALIPLATIN
     Indication: COLON CANCER
     Route: 041
     Dates: start: 20140514
  2. FOLIC ACID. [Concomitant]
     Active Substance: FOLIC ACID
  3. FLUOROURACILE ACCORD [Suspect]
     Active Substance: FLUOROURACIL
     Indication: COLON CANCER
     Dosage: STRENGTH: 50MG/ML
     Route: 041
     Dates: start: 20140514, end: 20141031
  4. ERBITUX [Suspect]
     Active Substance: CETUXIMAB
     Indication: COLON CANCER
     Dosage: STRENGTH: 50 ML
     Route: 041
     Dates: start: 20140514

REACTIONS (2)
  - Hyperpyrexia [Recovered/Resolved]
  - Chills [Recovered/Resolved]

NARRATIVE: CASE EVENT DATE: 20141031
